FAERS Safety Report 4384245-5 (Version None)
Quarter: 2004Q2

REPORT INFORMATION
  Report Type: 
  Country: None (occurrence: None)
  Receive Date: 20040624
  Receipt Date: 20040615
  Transmission Date: 20050107
  Serious: Yes (Hospitalization)
  Sender: FDA-Public Use
  Company Number: US-BRISTOL-MYERS SQUIBB COMPANY-12614772

PATIENT
  Age: 72 Year
  Sex: Female

DRUGS (3)
  1. COUMADIN [Suspect]
     Indication: PULMONARY THROMBOSIS
     Dates: start: 20040401, end: 20040401
  2. LOVENOX [Suspect]
     Indication: PROPHYLAXIS
     Dosage: HEPARIN FRACTION, SODIUM SALT (LOVENOX) SOLUTION FOR INJECTION.
     Route: 058
     Dates: start: 20040401
  3. PLAVIX [Concomitant]
     Dates: start: 20040401, end: 20040401

REACTIONS (2)
  - ABDOMINAL HAEMATOMA [None]
  - INJECTION SITE REACTION [None]
